FAERS Safety Report 24839979 (Version 3)
Quarter: 2025Q1

REPORT INFORMATION
  Report Type: Report from Study
  Country: US (occurrence: US)
  Receive Date: 20250114
  Receipt Date: 20250318
  Transmission Date: 20250408
  Serious: Yes (Hospitalization)
  Sender: ABBVIE
  Company Number: US-ABBVIE-6035253

PATIENT
  Age: 65 Year
  Sex: Female
  Weight: 79.378 kg

DRUGS (9)
  1. RINVOQ [Suspect]
     Active Substance: UPADACITINIB
     Indication: Rheumatoid arthritis
     Dosage: FORM STRENGTH: 15MG, MISSED DOSE
     Route: 048
     Dates: start: 20220405, end: 20221122
  2. RINVOQ [Suspect]
     Active Substance: UPADACITINIB
     Indication: Rheumatoid arthritis
     Dosage: FORM STRENGTH: 15MG
     Route: 048
     Dates: start: 2023
  3. RINVOQ [Suspect]
     Active Substance: UPADACITINIB
     Indication: Rheumatoid arthritis
     Route: 048
     Dates: start: 20220930
  4. FLUOXETINE [Concomitant]
     Active Substance: FLUOXETINE HYDROCHLORIDE
     Indication: Depression
  5. PANTOPRAZOLE [Concomitant]
     Active Substance: PANTOPRAZOLE
     Indication: Hiatus hernia
  6. MELATONIN [Concomitant]
     Active Substance: MELATONIN
     Indication: Sleep disorder
  7. FISH OIL [Concomitant]
     Active Substance: FISH OIL
     Indication: Supplementation therapy
  8. LIPITOR [Concomitant]
     Active Substance: ATORVASTATIN CALCIUM
     Indication: Cardiac disorder
  9. VITAMIN D3 [Concomitant]
     Active Substance: CHOLECALCIFEROL
     Indication: Product used for unknown indication

REACTIONS (4)
  - Renal failure [Recovered/Resolved]
  - Hypertension [Recovered/Resolved]
  - Hiatus hernia [Not Recovered/Not Resolved]
  - Anaemia [Recovering/Resolving]

NARRATIVE: CASE EVENT DATE: 20241217
